FAERS Safety Report 7098783-8 (Version None)
Quarter: 2010Q4

REPORT INFORMATION
  Report Type: 
  Country: None (occurrence: None)
  Receive Date: 20101112
  Receipt Date: 20101101
  Transmission Date: 20110411
  Serious: Yes (Hospitalization, Other)
  Sender: FDA-Public Use
  Company Number: US-ROCHE-738473

PATIENT
  Sex: Female

DRUGS (3)
  1. BEVACIZUMAB [Suspect]
     Indication: BREAST CANCER
     Dosage: LAST DOSE PRIOR TO SAE: 7 OCT 2010.
     Route: 065
     Dates: start: 20100916
  2. DOCETAXEL [Suspect]
     Indication: BREAST CANCER
     Dosage: LAST DOSE PRIOR TO SAE: 7 OCT 2010.
     Route: 065
     Dates: start: 20100916
  3. CYCLOPHOSPHAMIDE [Suspect]
     Indication: BREAST CANCER
     Dosage: LAST DOSE PRIOR TO SAE: 7 OCT 2010.
     Route: 065
     Dates: start: 20100916

REACTIONS (2)
  - ARRHYTHMIA SUPRAVENTRICULAR [None]
  - FEBRILE NEUTROPENIA [None]
